FAERS Safety Report 12719954 (Version 1)
Quarter: 2016Q3

REPORT INFORMATION
  Report Type: Spontaneous
  Country: US (occurrence: US)
  Receive Date: 20160906
  Receipt Date: 20160906
  Transmission Date: 20161109
  Serious: Yes (Hospitalization)
  Sender: FDA-Public Use
  Company Number: None

PATIENT
  Age: 70 Year
  Sex: Male
  Weight: 77.6 kg

DRUGS (2)
  1. LISINOPRIL. [Suspect]
     Active Substance: LISINOPRIL
     Indication: HYPERTENSION
     Route: 048
     Dates: start: 20160226, end: 20160404
  2. SPIRONOLACTONE. [Suspect]
     Active Substance: SPIRONOLACTONE
     Indication: HYPERTENSION
     Route: 048
     Dates: start: 20160227, end: 20160404

REACTIONS (7)
  - Pain in extremity [None]
  - Hyperkalaemia [None]
  - Acute kidney injury [None]
  - Dehydration [None]
  - Bronchitis [None]
  - Cough [None]
  - Pancytopenia [None]

NARRATIVE: CASE EVENT DATE: 20160404
